FAERS Safety Report 8226840-9 (Version None)
Quarter: 2012Q1

REPORT INFORMATION
  Report Type: 
  Country: None (occurrence: None)
  Receive Date: 20120322
  Receipt Date: 20120313
  Transmission Date: 20120608
  Serious: Yes (Other)
  Sender: FDA-Public Use
  Company Number: US-BAYER-2011-073236

PATIENT
  Sex: Female
  Weight: 52 kg

DRUGS (1)
  1. YAZ [Suspect]
     Indication: ACNE
     Dosage: UNK
     Dates: start: 20070501, end: 20090801

REACTIONS (5)
  - INJURY [None]
  - PAIN [None]
  - CHEST PAIN [None]
  - PALPITATIONS [None]
  - DEPRESSED LEVEL OF CONSCIOUSNESS [None]
